FAERS Safety Report 7346104-5 (Version None)
Quarter: 2011Q1

REPORT INFORMATION
  Report Type: 
  Country: None (occurrence: None)
  Receive Date: 20110311
  Receipt Date: 20100916
  Transmission Date: 20110831
  Serious: Yes (Other)
  Sender: FDA-Public Use
  Company Number: US-BAYER-201014021NA

PATIENT
  Sex: Female
  Weight: 54.422 kg

DRUGS (7)
  1. METRONIDAZOLE [Concomitant]
  2. NEXIUM [Concomitant]
  3. KETOROLAC [Concomitant]
  4. ALBUTEROL [Concomitant]
  5. LEVAQUIN [Concomitant]
  6. YASMIN [Suspect]
     Indication: CONTRACEPTION
     Dosage: UNK
     Route: 048
     Dates: start: 19990301, end: 20051001
  7. CIPROFLOXACIN [Concomitant]

REACTIONS (2)
  - CHOLELITHIASIS [None]
  - CHOLECYSTITIS CHRONIC [None]
